FAERS Safety Report 10070669 (Version 2)
Quarter: 2014Q2

REPORT INFORMATION
  Report Type: Spontaneous
  Country: BG (occurrence: BG)
  Receive Date: 20140410
  Receipt Date: 20140418
  Transmission Date: 20141212
  Serious: Yes (Life-Threatening)
  Sender: FDA-Public Use
  Company Number: BG-ASTRAZENECA-2014SE24603

PATIENT
  Age: 76 Year
  Sex: Male

DRUGS (2)
  1. BRILIQUE [Suspect]
     Indication: ACUTE CORONARY SYNDROME
     Route: 048
     Dates: start: 201403
  2. ASPIRIN [Concomitant]

REACTIONS (2)
  - Infarction [Recovered/Resolved]
  - Intentional product misuse [Unknown]
